FAERS Safety Report 20629022 (Version 1)
Quarter: 2022Q1

REPORT INFORMATION
  Report Type: Report from Study
  Country: ES (occurrence: ES)
  Receive Date: 20220323
  Receipt Date: 20220323
  Transmission Date: 20220424
  Serious: Yes (Other)
  Sender: FDA-Public Use
  Company Number: ES-ELI_LILLY_AND_COMPANY-ES202202009233

PATIENT
  Age: 72 Year
  Sex: Female

DRUGS (5)
  1. MORPHINE SULFATE [Suspect]
     Active Substance: MORPHINE SULFATE
     Indication: Spinal fracture
     Dosage: UNKNOWN
     Route: 065
     Dates: start: 202202
  2. ZALDIAR [Suspect]
     Active Substance: ACETAMINOPHEN\TRAMADOL HYDROCHLORIDE
     Indication: Spinal fracture
     Dosage: UNK [OTHER, 6 PER DAY]
     Route: 065
     Dates: start: 202202
  3. TERIPARATIDE [Suspect]
     Active Substance: TERIPARATIDE
     Indication: Osteoporosis
     Dosage: 20 MCG, DAILY [20 UG, DAILY]
     Route: 058
     Dates: start: 202202
  4. SPIRIVA [Concomitant]
     Active Substance: TIOTROPIUM BROMIDE MONOHYDRATE
     Indication: Product used for unknown indication
     Dosage: UNK
     Route: 065
  5. BUDESONIDE [Concomitant]
     Active Substance: BUDESONIDE
     Indication: Product used for unknown indication
     Dosage: UNK
     Route: 065

REACTIONS (1)
  - Aphonia [Not Recovered/Not Resolved]

NARRATIVE: CASE EVENT DATE: 20220201
